FAERS Safety Report 5403026-4 (Version None)
Quarter: 2007Q3

REPORT INFORMATION
  Report Type: 
  Country: None (occurrence: None)
  Receive Date: 20070713
  Receipt Date: 20070206
  Transmission Date: 20080115
  Serious: Yes (Other)
  Sender: FDA-Public Use
  Company Number: 481505

PATIENT
  Age: 50 Year
  Sex: Female
  Weight: 73.5 kg

DRUGS (1)
  1. BONIVA [Suspect]
     Indication: OSTEOPOROSIS
     Dosage: 1 DOSE FORM 1 PER ONE DOSE ORAL
     Route: 048
     Dates: start: 20070113, end: 20070113

REACTIONS (2)
  - ARTHRALGIA [None]
  - MYALGIA [None]
